FAERS Safety Report 10266587 (Version 1)
Quarter: 2014Q2

REPORT INFORMATION
  Report Type: Spontaneous
  Country: TW (occurrence: TW)
  Receive Date: 20140629
  Receipt Date: 20140629
  Transmission Date: 20141212
  Serious: Yes (Other)
  Sender: FDA-Public Use
  Company Number: PHHY2014TW079053

PATIENT
  Age: 50 Year
  Sex: Male
  Weight: 85 kg

DRUGS (6)
  1. CLOZAPINE [Suspect]
     Indication: PSYCHOTIC DISORDER
     Dosage: 725 MG, PER DAY
  2. CLOZAPINE [Suspect]
     Dosage: 400 MG, PER DAY
  3. AMISULPRIDE [Suspect]
     Dosage: 400 MG, PER DAY
  4. HALOPERIDOL [Suspect]
     Dosage: 17.5 MG, PER DAY
  5. VALPROIC ACID [Suspect]
     Dosage: 2000 MG, PER DAY
  6. CLONAZEPAM [Suspect]
     Dosage: 4 MG, PER DAY

REACTIONS (9)
  - Increased appetite [Recovered/Resolved]
  - Drooling [Unknown]
  - Sedation [Unknown]
  - Weight increased [Recovered/Resolved]
  - Blood glucose increased [Recovered/Resolved]
  - Blood triglycerides increased [Recovered/Resolved]
  - Salivary hypersecretion [Recovering/Resolving]
  - Akathisia [Recovering/Resolving]
  - Therapeutic response decreased [Unknown]
